FAERS Safety Report 9797098 (Version 1)
Quarter: 2014Q1

REPORT INFORMATION
  Report Type: Report from Study
  Country: US (occurrence: US)
  Receive Date: 20140106
  Receipt Date: 20140106
  Transmission Date: 20141002
  Serious: Yes (Other)
  Sender: FDA-Public Use
  Company Number: US-ROCHE-1327756

PATIENT
  Age: 71 Year
  Sex: Female

DRUGS (9)
  1. AVASTIN [Suspect]
     Indication: AGE-RELATED MACULAR DEGENERATION
     Dosage: MOST RECENT DOSE 05/DEC/2013
     Route: 050
     Dates: start: 20120308
  2. AVASTIN [Suspect]
     Dosage: MOST RECENT DOSE 05/DEC/2013
     Route: 050
     Dates: start: 20131106
  3. BONIVA [Suspect]
     Indication: PRODUCT USED FOR UNKNOWN INDICATION
     Dosage: EVERY MONTH ON THE SAME DATE
     Route: 048
  4. ASPIRIN [Concomitant]
  5. CALTRATE [Concomitant]
     Route: 065
  6. OMEPRAZOLE [Concomitant]
  7. OXAZEPAM [Concomitant]
     Route: 048
  8. PRESERVISION AREDS [Concomitant]
  9. PROPRANOLOL HCL [Concomitant]

REACTIONS (8)
  - Ocular hyperaemia [Unknown]
  - Eyelid oedema [Unknown]
  - Pain [Unknown]
  - Vitreous floaters [Recovered/Resolved]
  - Visual acuity reduced [Unknown]
  - Visual impairment [Unknown]
  - Eye pain [Unknown]
  - Lacrimation increased [Unknown]
